FAERS Safety Report 20780947 (Version 3)
Quarter: 2022Q2

REPORT INFORMATION
  Report Type: Spontaneous
  Country: US (occurrence: US)
  Receive Date: 20220504
  Receipt Date: 20220520
  Transmission Date: 20220721
  Serious: Yes (Hospitalization, Other)
  Sender: FDA-Public Use
  Company Number: US-SANOFI-01081060

PATIENT
  Sex: Female

DRUGS (1)
  1. TOUJEO [Suspect]
     Active Substance: INSULIN GLARGINE
     Indication: Type 2 diabetes mellitus
     Dosage: 60 U, QD

REACTIONS (14)
  - Hospitalisation [Recovering/Resolving]
  - Ulcer haemorrhage [Unknown]
  - Dyspnoea [Unknown]
  - Near death experience [Unknown]
  - Internal haemorrhage [Unknown]
  - Cardiac failure congestive [Unknown]
  - Haemolytic transfusion reaction [Unknown]
  - Oesophageal perforation [Unknown]
  - Dementia [Unknown]
  - Anxiety [Unknown]
  - Haemoglobin decreased [Unknown]
  - Respiration abnormal [Unknown]
  - Chest pain [Unknown]
  - Oxygen saturation decreased [Unknown]
